FAERS Safety Report 16678003 (Version 1)
Quarter: 2019Q3

REPORT INFORMATION
  Report Type: Report from Study
  Country: None (occurrence: CA)
  Receive Date: 20190807
  Receipt Date: 20190807
  Transmission Date: 20191004
  Serious: Yes (Other)
  Sender: FDA-Public Use
  Company Number: CA-ABBVIE-19K-028-2877726-00

PATIENT
  Sex: Female

DRUGS (1)
  1. HUMIRA [Suspect]
     Active Substance: ADALIMUMAB
     Indication: CROHN^S DISEASE
     Route: 058
     Dates: start: 20160728

REACTIONS (4)
  - Anal incontinence [Not Recovered/Not Resolved]
  - Mitral valve incompetence [Unknown]
  - Diarrhoea [Not Recovered/Not Resolved]
  - Food intolerance [Unknown]
